FAERS Safety Report 8407324 (Version 2)
Quarter: 2013Q4

REPORT INFORMATION
  Report Type: Spontaneous
  Country: US (occurrence: US)
  Receive Date: 20120215
  Receipt Date: 20131219
  Transmission Date: 20140711
  Serious: Yes (Other)
  Sender: FDA-Public Use
  Company Number: US-BAYER-2012-014676

PATIENT
  Age: 36 Year
  Sex: Female

DRUGS (3)
  1. YAZ [Suspect]
     Dosage: UNK
     Dates: start: 200610, end: 200912
  2. ALLEGRA [Concomitant]
     Dosage: UNK
     Dates: start: 20100107
  3. DICYCLOMINE [Concomitant]
     Dosage: 10 MG, UNK
     Dates: start: 20091026

REACTIONS (8)
  - Gallbladder disorder [None]
  - Cholecystitis chronic [None]
  - Psychological trauma [None]
  - Post cholecystectomy syndrome [None]
  - Pain [None]
  - Gastrointestinal disorder [None]
  - Anxiety [None]
  - Anhedonia [None]
